FAERS Safety Report 22115567 (Version 1)
Quarter: 2023Q1

REPORT INFORMATION
  Report Type: Spontaneous
  Country: SE (occurrence: SE)
  Receive Date: 20230320
  Receipt Date: 20230320
  Transmission Date: 20230417
  Serious: Yes (Other)
  Sender: FDA-Public Use
  Company Number: None

PATIENT
  Age: 27 Year
  Sex: Female
  Weight: 80 kg

DRUGS (2)
  1. MIRENA [Suspect]
     Active Substance: LEVONORGESTREL
     Indication: Contraception
     Dosage: 20?G/DAY
     Route: 015
     Dates: start: 20201217, end: 20210906
  2. LYNESTRENOL [Concomitant]
     Active Substance: LYNESTRENOL
     Dosage: 0.5 MG 1 TABLET ONCE PER DAY.
     Route: 048
     Dates: start: 20210604, end: 20210826

REACTIONS (6)
  - Self-injurious ideation [Recovered/Resolved]
  - Depressed mood [Recovering/Resolving]
  - Panic attack [Recovered/Resolved]
  - Obsessive thoughts [Recovered/Resolved]
  - Anxiety [Recovering/Resolving]
  - Adnexa uteri pain [Recovered/Resolved]

NARRATIVE: CASE EVENT DATE: 20201217
